FAERS Safety Report 15990697 (Version 1)
Quarter: 2019Q1

REPORT INFORMATION
  Report Type: Spontaneous
  Country: JP (occurrence: JP)
  Receive Date: 20190221
  Receipt Date: 20190221
  Transmission Date: 20190418
  Serious: Yes (Hospitalization)
  Sender: FDA-Public Use
  Company Number: JP-ELI_LILLY_AND_COMPANY-JP201811010645

PATIENT
  Sex: Male

DRUGS (4)
  1. ERBITUX [Suspect]
     Active Substance: CETUXIMAB
     Indication: MAXILLOFACIAL SINUS NEOPLASM
     Dosage: UNK, UNKNOWN
     Route: 041
     Dates: start: 20180820
  2. FLUOROURACIL. [Concomitant]
     Active Substance: FLUOROURACIL
     Indication: MAXILLOFACIAL SINUS NEOPLASM
     Dosage: UNK
  3. CARBOPLATIN. [Concomitant]
     Active Substance: CARBOPLATIN
     Indication: MAXILLOFACIAL SINUS NEOPLASM
  4. CISPLATIN. [Concomitant]
     Active Substance: CISPLATIN
     Indication: MAXILLOFACIAL SINUS NEOPLASM
     Dosage: UNK

REACTIONS (1)
  - Skin ulcer [Recovered/Resolved]

NARRATIVE: CASE EVENT DATE: 2018
